FAERS Safety Report 16836874 (Version 1)
Quarter: 2019Q3

REPORT INFORMATION
  Report Type: Spontaneous
  Country: JP (occurrence: JP)
  Receive Date: 20190922
  Receipt Date: 20190922
  Transmission Date: 20191005
  Serious: Yes (Hospitalization)
  Sender: FDA-Public Use
  Company Number: JP-AMGEN-JPNSP2019154879

PATIENT
  Age: 4 Decade
  Sex: Female

DRUGS (5)
  1. NEORAL [Concomitant]
     Active Substance: CYCLOSPORINE
     Indication: APLASTIC ANAEMIA
     Dosage: 150 MILLIGRAM
     Route: 048
  2. ROMIPLATE [Suspect]
     Active Substance: ROMIPLOSTIM
     Indication: APLASTIC ANAEMIA
     Dosage: 10 MICROGRAM/KILOGRAM
     Route: 058
  3. DIENOGEST [Suspect]
     Active Substance: DIENOGEST
     Indication: PRODUCT USED FOR UNKNOWN INDICATION
     Dosage: UNK
     Route: 048
  4. FILGRASTIM BS [Concomitant]
     Active Substance: FILGRASTIM
     Indication: NEUTROPENIA
     Dosage: UNK
     Route: 065
  5. ROMIPLATE [Suspect]
     Active Substance: ROMIPLOSTIM
     Dosage: 15 MICROGRAM/KILOGRAM
     Route: 058

REACTIONS (1)
  - Cerebral infarction [Not Recovered/Not Resolved]
